FAERS Safety Report 8423430-X (Version None)
Quarter: 2012Q2

REPORT INFORMATION
  Report Type: 
  Country: None (occurrence: None)
  Receive Date: 20120608
  Receipt Date: 20120530
  Transmission Date: 20120825
  Serious: Yes (Hospitalization, Other)
  Sender: FDA-Public Use
  Company Number: US-ASTRAZENECA-2012SE15491

PATIENT
  Age: 50 Year
  Sex: Female
  Weight: 86.8 kg

DRUGS (3)
  1. OMEPRAZOLE [Suspect]
     Route: 048
     Dates: start: 20111123
  2. NEXIUM [Suspect]
     Route: 048
     Dates: start: 20120111
  3. CRESTOR [Suspect]
     Route: 048
     Dates: start: 20111215

REACTIONS (1)
  - UTERINE LEIOMYOMA [None]
